FAERS Safety Report 9727523 (Version 2)
Quarter: 2015Q3

REPORT INFORMATION
  Report Type: Spontaneous
  Country: US (occurrence: US)
  Receive Date: 20131203
  Receipt Date: 20150731
  Transmission Date: 20151125
  Serious: No
  Sender: FDA-Public Use
  Company Number: US-GILEAD-2008-0018990

PATIENT
  Sex: Female

DRUGS (2)
  1. VIREAD [Suspect]
     Active Substance: TENOFOVIR DISOPROXIL FUMARATE
     Indication: HEPATITIS B
  2. HEPSERA [Suspect]
     Active Substance: ADEFOVIR DIPIVOXIL

REACTIONS (2)
  - Alanine aminotransferase increased [Unknown]
  - Therapeutic response decreased [Unknown]
